FAERS Safety Report 8671691 (Version 6)
Quarter: 2012Q4

REPORT INFORMATION
  Report Type: Report from Study
  Country: CA (occurrence: CA)
  Receive Date: 20120718
  Receipt Date: 20121018
  Transmission Date: 20130627
  Serious: Yes (Hospitalization, Other)
  Sender: FDA-Public Use
  Company Number: CA-ROCHE-1067330

PATIENT
  Age: 69 None
  Sex: Male

DRUGS (6)
  1. VEMURAFENIB [Suspect]
     Indication: METASTATIC MALIGNANT MELANOMA
     Dosage: Start date :/Apr/2012
     Route: 048
  2. LORAZEPAM [Suspect]
     Indication: SLEEP DISORDER
     Dosage: hs
     Route: 065
  3. TYLENOL [Concomitant]
     Route: 065
  4. DEXAMETHASONE [Concomitant]
     Route: 065
     Dates: end: 20120731
  5. DEXAMETHASONE [Concomitant]
     Route: 065
     Dates: start: 201208
  6. RABEPRAZOLE [Concomitant]
     Dosage: Unknown
     Route: 065

REACTIONS (19)
  - Gait disturbance [Recovering/Resolving]
  - Brain neoplasm [Not Recovered/Not Resolved]
  - Confusional state [Not Recovered/Not Resolved]
  - Bedridden [Not Recovered/Not Resolved]
  - Incontinence [Not Recovered/Not Resolved]
  - Metastases to central nervous system [Not Recovered/Not Resolved]
  - Disease progression [Not Recovered/Not Resolved]
  - Squamous cell carcinoma [Not Recovered/Not Resolved]
  - Drug ineffective [Not Recovered/Not Resolved]
  - Headache [Unknown]
  - Hypersomnia [Not Recovered/Not Resolved]
  - Insomnia [Not Recovered/Not Resolved]
  - Ear infection [Unknown]
  - Diarrhoea [Not Recovered/Not Resolved]
  - Rash [Not Recovered/Not Resolved]
  - Decreased appetite [Recovering/Resolving]
  - Brain neoplasm [Not Recovered/Not Resolved]
  - Depression [Not Recovered/Not Resolved]
  - Balance disorder [Recovering/Resolving]
